FAERS Safety Report 9913128 (Version 1)
Quarter: 2014Q1

REPORT INFORMATION
  Report Type: Spontaneous
  Country: US (occurrence: None)
  Receive Date: 20140214
  Receipt Date: 20140214
  Transmission Date: 20141002
  Serious: Yes (Hospitalization)
  Sender: FDA-Public Use
  Company Number: 2178714

PATIENT
  Age: 17 Year
  Sex: Male

DRUGS (8)
  1. CALCIUM FOLINATE [Suspect]
     Indication: DIFFUSE LARGE B-CELL LYMPHOMA
  2. VINCRISTINE SULFATE [Suspect]
     Indication: DIFFUSE LARGE B-CELL LYMPHOMA
  3. METHOTREXATE [Suspect]
     Indication: DIFFUSE LARGE B-CELL LYMPHOMA
  4. PIPERACILLIN AND TAZOBACTAM [Suspect]
     Indication: FEBRILE NEUTROPENIA
  5. VANCOMYCIN HYDROCHLORIDE [Suspect]
     Indication: FEBRILE NEUTROPENIA
  6. CYCLOPHOSPHAMIDE [Suspect]
     Indication: DIFFUSE LARGE B-CELL LYMPHOMA
  7. PREDNISONE [Suspect]
     Indication: DIFFUSE LARGE B-CELL LYMPHOMA
  8. MESNA [Suspect]
     Indication: DIFFUSE LARGE B-CELL LYMPHOMA

REACTIONS (5)
  - Renal failure acute [None]
  - Diarrhoea [None]
  - Vomiting [None]
  - Pyrexia [None]
  - Neutropenia [None]
